FAERS Safety Report 4610879-6 (Version None)
Quarter: 2005Q2

REPORT INFORMATION
  Report Type: 
  Country: None (occurrence: None)
  Receive Date: 20050301
  Receipt Date: 20040518
  Transmission Date: 20051028
  Serious: Yes (Other)
  Sender: FDA-Public Use
  Company Number: MYAM000011

PATIENT
  Age: 72 Year
  Sex: Female

DRUGS (1)
  1. MYAMBUTOL [Suspect]
     Indication: DRUG USE FOR UNKNOWN INDICATION
     Dates: start: 20020301, end: 20020401

REACTIONS (1)
  - LIVER DISORDER [None]
